FAERS Safety Report 9201647 (Version 1)
Quarter: 2013Q2

REPORT INFORMATION
  Report Type: Spontaneous
  Country: BR (occurrence: BR)
  Receive Date: 20130401
  Receipt Date: 20130401
  Transmission Date: 20140414
  Serious: Yes (Other)
  Sender: FDA-Public Use
  Company Number: PHHY2013BR030721

PATIENT
  Sex: Male

DRUGS (3)
  1. TOFRANIL [Suspect]
     Indication: PSYCHOMOTOR HYPERACTIVITY
     Dosage: 2 DF, (10 MG) DAILY
     Route: 048
     Dates: start: 201209, end: 201212
  2. TOFRANIL [Suspect]
     Indication: DISTURBANCE IN ATTENTION
     Dosage: 1 DF, (25 MG) DAILY
     Route: 048
     Dates: start: 201212
  3. RITALIN LA [Suspect]
     Indication: MEMORY IMPAIRMENT
     Dosage: 1 DF, QD (20 MG), IN THE MORNING AT 11:00)
     Route: 048
     Dates: end: 201209

REACTIONS (2)
  - Hearing impaired [Not Recovered/Not Resolved]
  - Anxiety [Not Recovered/Not Resolved]
